FAERS Safety Report 5848304-X (Version None)
Quarter: 2008Q3

REPORT INFORMATION
  Report Type: 
  Country: None (occurrence: None)
  Receive Date: 20080818
  Receipt Date: 20080811
  Transmission Date: 20090109
  Serious: Yes (Other)
  Sender: FDA-Public Use
  Company Number: US-MERCK-0808USA01805

PATIENT
  Age: 81 Year
  Sex: Female

DRUGS (8)
  1. FOSAMAX [Suspect]
     Indication: OSTEOPOROSIS POSTMENOPAUSAL
     Route: 048
     Dates: start: 20020101, end: 20080401
  2. CALCIUM (UNSPECIFIED) [Concomitant]
     Route: 065
  3. POTASSIUM (UNSPECIFIED) [Concomitant]
     Route: 065
  4. SIMVASTATIN [Concomitant]
     Route: 048
  5. HYDROCHLOROTHIAZIDE [Concomitant]
     Route: 048
  6. METOPROLOL [Concomitant]
     Route: 065
  7. MULTIVITAMIN [Concomitant]
     Route: 065
  8. ASPIRIN [Concomitant]
     Route: 065

REACTIONS (3)
  - MYOCARDIAL INFARCTION [None]
  - TOOTH DISORDER [None]
  - TOOTH LOSS [None]
